FAERS Safety Report 20304808 (Version 1)
Quarter: 2022Q1

REPORT INFORMATION
  Report Type: Spontaneous
  Country: US (occurrence: US)
  Receive Date: 20220106
  Receipt Date: 20220106
  Transmission Date: 20220423
  Serious: No
  Sender: FDA-Public Use
  Company Number: US-HERON THERAPEUTICS, INC-HRTX-2021-000696

PATIENT
  Age: 54 Year
  Sex: Female

DRUGS (2)
  1. ZYNRELEF [Suspect]
     Active Substance: BUPIVACAINE\MELOXICAM
     Indication: Bunion operation
     Dosage: 2CC
     Route: 026
  2. ANCEF [CEFRADINE] [Concomitant]
     Indication: Product used for unknown indication
     Dosage: UNK
     Route: 042
     Dates: start: 20211104

REACTIONS (2)
  - Wound dehiscence [Recovered/Resolved]
  - Suture related complication [Unknown]

NARRATIVE: CASE EVENT DATE: 20211104
